FAERS Safety Report 19053940 (Version 1)
Quarter: 2021Q1

REPORT INFORMATION
  Report Type: Spontaneous
  Country: US (occurrence: US)
  Receive Date: 20210325
  Receipt Date: 20210325
  Transmission Date: 20210420
  Serious: Yes (Other)
  Sender: FDA-Public Use
  Company Number: US-ROCHE-2789713

PATIENT
  Age: 61 Year
  Sex: Female
  Weight: 138.47 kg

DRUGS (8)
  1. OTEZLA [Suspect]
     Active Substance: APREMILAST
     Route: 048
     Dates: start: 202012, end: 20210127
  2. XOLAIR [Suspect]
     Active Substance: OMALIZUMAB
     Indication: ASTHMA
     Route: 058
     Dates: start: 200908
  3. OTEZLA [Suspect]
     Active Substance: APREMILAST
     Dosage: GRADUAL STAIR STEP INCREASE OF DOSE EACH DAY
     Route: 048
     Dates: start: 20201008, end: 20201020
  4. XOLAIR [Suspect]
     Active Substance: OMALIZUMAB
  5. PREDNISONE. [Concomitant]
     Active Substance: PREDNISONE
     Route: 048
  6. OTEZLA [Suspect]
     Active Substance: APREMILAST
     Indication: PSORIATIC ARTHROPATHY
     Route: 048
     Dates: start: 20201007, end: 20201007
  7. OTEZLA [Suspect]
     Active Substance: APREMILAST
     Route: 048
     Dates: start: 20201008, end: 20201008
  8. OTEZLA [Suspect]
     Active Substance: APREMILAST
     Dosage: 30 MG IN THE MORNING AND 30 MG IN THE EVENING
     Route: 048
     Dates: start: 20201021, end: 202012

REACTIONS (10)
  - Headache [Recovered/Resolved]
  - Blood creatinine increased [Unknown]
  - Dizziness [Recovered/Resolved]
  - Exercise lack of [Recovered/Resolved]
  - Red blood cell sedimentation rate increased [Unknown]
  - Renal impairment [Recovering/Resolving]
  - Nausea [Recovered/Resolved]
  - Psoriatic arthropathy [Unknown]
  - Malaise [Unknown]
  - Back pain [Recovered/Resolved]

NARRATIVE: CASE EVENT DATE: 202011
